FAERS Safety Report 4983718-1 (Version None)
Quarter: 2006Q1

REPORT INFORMATION
  Report Type: 
  Country: None (occurrence: None)
  Receive Date: 20060301
  Receipt Date: 20060110
  Transmission Date: 20060701
  Serious: No
  Sender: FDA-Public Use
  Company Number: S06-USA-00148-01

PATIENT
  Sex: Male

DRUGS (2)
  1. NAMENDA [Suspect]
     Dosage: 10 MG QD PO
     Route: 048
  2. ARICEPT [Concomitant]

REACTIONS (2)
  - DIZZINESS [None]
  - MYALGIA [None]
